FAERS Safety Report 9548061 (Version 1)
Quarter: 2013Q2

REPORT INFORMATION
  Report Type: Spontaneous
  Country: US (occurrence: None)
  Receive Date: 20130627
  Receipt Date: 20130627
  Transmission Date: 20140414
  Serious: No
  Sender: FDA-Public Use
  Company Number: 1000043248

PATIENT
  Age: 82 Year
  Sex: Male

DRUGS (7)
  1. LINZESS (LINACLOTIDE) (145 MICROGRAM, CAPSULES) [Suspect]
     Indication: IRRITABLE BOWEL SYNDROME
     Route: 048
     Dates: start: 20130306
  2. NORVASC (AMLODIPINE BESILATE) (AMLODIPINE BESILATE) [Concomitant]
  3. METOPROLOL (METOPROLOL) [Concomitant]
  4. RANITIDE (RANITIDINE) [Concomitant]
  5. FLOMAX (TAMSULOSIN) (TAMSULOSIN) [Concomitant]
  6. TYLENOL (ACETAMINOPHEN) (ACETAMINOPHEN) [Concomitant]
  7. ULTRACET (ULTRACET) [Concomitant]

REACTIONS (1)
  - Abdominal pain upper [None]
